APPROVED DRUG PRODUCT: HYDROMORPHONE HYDROCHLORIDE
Active Ingredient: HYDROMORPHONE HYDROCHLORIDE
Strength: 1MG/ML
Dosage Form/Route: INJECTABLE;INJECTION
Application: N200403 | Product #001 | TE Code: AP
Applicant: HOSPIRA INC
Approved: Dec 1, 2011 | RLD: No | RS: No | Type: RX